FAERS Safety Report 13666479 (Version 1)
Quarter: 2017Q2

REPORT INFORMATION
  Report Type: Spontaneous
  Country: US (occurrence: US)
  Receive Date: 20170619
  Receipt Date: 20170619
  Transmission Date: 20170830
  Serious: Yes (Disabling)
  Sender: FDA-Public Use
  Company Number: US-ROCHE-1137552

PATIENT
  Sex: Male
  Weight: 60.38 kg

DRUGS (4)
  1. XELODA [Suspect]
     Active Substance: CAPECITABINE
     Indication: COLON CANCER
     Route: 048
     Dates: start: 20120917, end: 20120926
  2. LASIX [Concomitant]
     Active Substance: FUROSEMIDE
     Indication: OEDEMA
     Route: 048
     Dates: start: 20120906
  3. OXALIPLATIN. [Concomitant]
     Active Substance: OXALIPLATIN
     Indication: COLON CANCER
     Dosage: OF 21 DAYS
     Route: 042
     Dates: start: 20120917
  4. LORTAB [Concomitant]
     Active Substance: ACETAMINOPHEN\HYDROCODONE BITARTRATE
     Indication: PAIN
     Dosage: OF 6 HOURS
     Route: 048
     Dates: start: 20120906

REACTIONS (4)
  - Oedema [Not Recovered/Not Resolved]
  - Constipation [Not Recovered/Not Resolved]
  - Peripheral swelling [Unknown]
  - Unevaluable event [Unknown]
